FAERS Safety Report 7231494-4 (Version None)
Quarter: 2011Q1

REPORT INFORMATION
  Report Type: 
  Country: None (occurrence: None)
  Receive Date: 20110118
  Receipt Date: 20110113
  Transmission Date: 20110831
  Serious: Yes (Hospitalization)
  Sender: FDA-Public Use
  Company Number: US-CEPHALON-2011000213

PATIENT
  Sex: Male
  Weight: 86 kg

DRUGS (5)
  1. ACYCLOVIR [Concomitant]
     Dates: start: 20101218
  2. CIPRO [Concomitant]
     Dates: start: 20100111
  3. OFATUMUMAB [Suspect]
     Indication: B-CELL LYMPHOMA
     Route: 042
     Dates: start: 20100922
  4. BACTRIM [Concomitant]
     Dates: start: 20101218
  5. TREANDA [Suspect]
     Indication: B-CELL LYMPHOMA
     Route: 042
     Dates: start: 20100922

REACTIONS (2)
  - PYREXIA [None]
  - SOFT TISSUE INFLAMMATION [None]
